FAERS Safety Report 13596437 (Version 1)
Quarter: 2017Q2

REPORT INFORMATION
  Report Type: Spontaneous
  Country: US (occurrence: US)
  Receive Date: 20170530
  Receipt Date: 20170530
  Transmission Date: 20170830
  Serious: Yes (Hospitalization, Other)
  Sender: FDA-Public Use
  Company Number: None

PATIENT
  Age: 51 Year
  Sex: Female
  Weight: 83.25 kg

DRUGS (9)
  1. FERROUS SULFATE. [Concomitant]
     Active Substance: FERROUS SULFATE
  2. CLONIDINE. [Concomitant]
     Active Substance: CLONIDINE
  3. SIMPONI ARIA [Suspect]
     Active Substance: GOLIMUMAB
     Indication: RHEUMATOID ARTHRITIS
     Dates: start: 20170103, end: 20170218
  4. CARAFATE [Concomitant]
     Active Substance: SUCRALFATE
  5. VITAMIN C [Concomitant]
     Active Substance: ASCORBIC ACID
  6. OMEPRAZOLE. [Concomitant]
     Active Substance: OMEPRAZOLE
  7. BABY ASPIRIN [Concomitant]
     Active Substance: ASPIRIN
  8. MULTI VITAMIN [Concomitant]
     Active Substance: VITAMINS
  9. VITAMIN D [Concomitant]
     Active Substance: CHOLECALCIFEROL

REACTIONS (2)
  - Pneumonia [None]
  - Neoplasm malignant [None]

NARRATIVE: CASE EVENT DATE: 20170227
